FAERS Safety Report 4533319-4 (Version None)
Quarter: 2005Q1

REPORT INFORMATION
  Report Type: 
  Country: None (occurrence: None)
  Receive Date: 20041206
  Receipt Date: 20040827
  Transmission Date: 20050727
  Serious: No
  Sender: FDA-Public Use
  Company Number: USA040876702

PATIENT
  Age: 19 Year
  Sex: Female

DRUGS (3)
  1. CYMBALTA [Suspect]
     Indication: DEPRESSION
     Dosage: 60 MG/1 DAY
     Dates: start: 20040820, end: 20040823
  2. PREVACID [Concomitant]
  3. PROTONIX [Concomitant]

REACTIONS (5)
  - ANXIETY [None]
  - HEART RATE INCREASED [None]
  - INSOMNIA [None]
  - IRRITABILITY [None]
  - NAUSEA [None]
